FAERS Safety Report 12398119 (Version 1)
Quarter: 2016Q2

REPORT INFORMATION
  Report Type: Report from Study
  Country: BR (occurrence: BR)
  Receive Date: 20160524
  Receipt Date: 20160524
  Transmission Date: 20160815
  Serious: Yes (Other)
  Sender: FDA-Public Use
  Company Number: PHHY2015BR057035

PATIENT
  Sex: Female
  Weight: 48 kg

DRUGS (3)
  1. ACIDO FOLICO//FOLIC ACID [Concomitant]
     Active Substance: FOLIC ACID
     Indication: PRODUCT USED FOR UNKNOWN INDICATION
     Route: 065
  2. EXJADE [Suspect]
     Active Substance: DEFERASIROX
     Indication: SICKLE CELL ANAEMIA
     Dosage: 1 DF (10 MGKG), QD
     Route: 048
     Dates: start: 2012
  3. HYDREA [Concomitant]
     Active Substance: HYDROXYUREA
     Indication: PRODUCT USED FOR UNKNOWN INDICATION
     Route: 065

REACTIONS (12)
  - Malaise [Unknown]
  - Chikungunya virus infection [Unknown]
  - Feeling abnormal [Unknown]
  - Nausea [Unknown]
  - Iron overload [Unknown]
  - Hypersomnia [Unknown]
  - Drug ineffective [Unknown]
  - Retching [Unknown]
  - Weight decreased [Unknown]
  - Pain [Unknown]
  - Fall [Unknown]
  - Eating disorder [Unknown]
